FAERS Safety Report 5011856-6 (Version None)
Quarter: 2006Q2

REPORT INFORMATION
  Report Type: 
  Country: None (occurrence: None)
  Receive Date: 20060526
  Receipt Date: 20060516
  Transmission Date: 20061013
  Serious: Yes (Hospitalization)
  Sender: FDA-Public Use
  Company Number: US-SANOFI-SYNTHELABO-A03200603105

PATIENT
  Sex: Male

DRUGS (4)
  1. LUNESTA [Suspect]
     Dosage: UNK
     Route: 048
     Dates: start: 20051113, end: 20051113
  2. LUNESTA [Suspect]
     Dosage: UNK
     Route: 048
     Dates: start: 20051113, end: 20051113
  3. AMBIEN [Suspect]
     Dosage: UNK
     Route: 048
  4. AMBIEN [Suspect]
     Dosage: UNK
     Route: 048

REACTIONS (3)
  - INTENTIONAL OVERDOSE [None]
  - RESPIRATORY FAILURE [None]
  - SUICIDE ATTEMPT [None]
